FAERS Safety Report 9880810 (Version 1)
Quarter: 2014Q1

REPORT INFORMATION
  Report Type: Spontaneous
  Country: US (occurrence: US)
  Receive Date: 20140207
  Receipt Date: 20140207
  Transmission Date: 20141002
  Serious: No
  Sender: FDA-Public Use
  Company Number: US-PFIZER INC-2014034470

PATIENT
  Sex: Female

DRUGS (2)
  1. CHANTIX [Suspect]
     Indication: SMOKING CESSATION THERAPY
     Dosage: UNK
     Route: 048
     Dates: start: 20131212, end: 201312
  2. CHANTIX [Interacting]
     Dosage: 1 MG, 2X/DAY
     Route: 048
     Dates: start: 201312

REACTIONS (5)
  - Nausea [Not Recovered/Not Resolved]
  - Influenza [Unknown]
  - Fatigue [Unknown]
  - Somnolence [Unknown]
  - Drug interaction [Unknown]
